FAERS Safety Report 5252781-5 (Version None)
Quarter: 2007Q1

REPORT INFORMATION
  Report Type: 
  Country: None (occurrence: None)
  Receive Date: 20070301
  Receipt Date: 20061201
  Transmission Date: 20070707
  Serious: No
  Sender: FDA-Public Use
  Company Number: US-GLAXOSMITHKLINE-A0629919A

PATIENT
  Age: 40 Year
  Sex: Female

DRUGS (4)
  1. LAMICTAL [Suspect]
     Indication: DRUG USE FOR UNKNOWN INDICATION
     Dosage: 100MG TWICE PER DAY
     Route: 048
  2. LUVOX [Concomitant]
     Indication: ANXIETY
     Dosage: 100MG AT NIGHT
     Route: 048
     Dates: start: 20060912
  3. GEODON [Concomitant]
     Dosage: 120MG PER DAY
     Route: 048
     Dates: start: 20060906
  4. KLONOPIN [Concomitant]
     Indication: ANXIETY
     Dosage: .5MG AS REQUIRED
     Route: 048
     Dates: start: 20060922

REACTIONS (3)
  - OILY SKIN [None]
  - PHARMACEUTICAL PRODUCT COMPLAINT [None]
  - SEBORRHOEA [None]
